FAERS Safety Report 18497910 (Version 1)
Quarter: 2020Q4

REPORT INFORMATION
  Report Type: Spontaneous
  Country: IT (occurrence: IT)
  Receive Date: 20201112
  Receipt Date: 20201112
  Transmission Date: 20210114
  Serious: Yes (Other)
  Sender: FDA-Public Use
  Company Number: IT-MYLANLABS-2020M1093473

PATIENT
  Age: 58 Year
  Sex: Female

DRUGS (2)
  1. PACLITAXEL. [Suspect]
     Active Substance: PACLITAXEL
     Indication: OVARIAN CANCER
     Dosage: 236 MILLIGRAM, CYCLE
     Route: 042
     Dates: start: 20200612
  2. CARBOPLATIN. [Suspect]
     Active Substance: CARBOPLATIN
     Indication: OVARIAN CANCER
     Dosage: 675 MILLIGRAM, CYCLE
     Route: 042
     Dates: start: 20200612

REACTIONS (4)
  - Neutropenia [Unknown]
  - Dysgeusia [Unknown]
  - Neuromuscular toxicity [Unknown]
  - Paraesthesia [Unknown]

NARRATIVE: CASE EVENT DATE: 20200928
